FAERS Safety Report 11462146 (Version 1)
Quarter: 2015Q3

REPORT INFORMATION
  Report Type: Spontaneous
  Country: US (occurrence: US)
  Receive Date: 20150831
  Receipt Date: 20150831
  Transmission Date: 20151125
  Serious: No
  Sender: FDA-Public Use
  Company Number: US-ELI_LILLY_AND_COMPANY-US201010001234

PATIENT
  Age: 54 Year
  Sex: Male

DRUGS (3)
  1. CYMBALTA [Suspect]
     Active Substance: DULOXETINE HYDROCHLORIDE
     Indication: ANXIETY
     Dosage: UNK, 3/D
     Dates: start: 20050622
  2. TAPAZOLE [Concomitant]
     Active Substance: METHIMAZOLE
     Dosage: 1 MG, UNK
  3. TAPAZOLE [Concomitant]
     Active Substance: METHIMAZOLE
     Indication: HYPERTHYROIDISM

REACTIONS (4)
  - Pruritus [Unknown]
  - Hallucination, visual [Not Recovered/Not Resolved]
  - Skin haemorrhage [Recovering/Resolving]
  - Hallucination [Not Recovered/Not Resolved]
